FAERS Safety Report 8225513 (Version 2)
Quarter: 2013Q1

REPORT INFORMATION
  Report Type: Spontaneous
  Country: ES (occurrence: ES)
  Receive Date: 20111103
  Receipt Date: 20130321
  Transmission Date: 20140127
  Serious: Yes (Other)
  Sender: FDA-Public Use
  Company Number: ES-PFIZER INC-2011267995

PATIENT
  Age: 68 Year
  Sex: Female

DRUGS (13)
  1. VANDRAL [Suspect]
     Indication: PAIN
     Dosage: 150 MG, 1X/DAY
     Dates: start: 200906
  2. VANDRAL [Interacting]
     Indication: DEPRESSION
  3. TRAMADOL [Interacting]
     Indication: PAIN
     Dosage: 150 MG, 1X/DAY
     Dates: start: 20110407, end: 20110508
  4. MEMANTINE [Concomitant]
     Dosage: 20 MG, UNK
  5. CANDESARTAN [Concomitant]
     Dosage: 8 MG, UNK
  6. CALCIUM WITH VITAMIN D [Concomitant]
     Dosage: UNK
  7. PENTOXIFYLLINE [Concomitant]
     Dosage: 800 MG, UNK
  8. IRON SULFATE [Concomitant]
     Dosage: 100 MG, UNK
  9. LORAZEPAM [Concomitant]
     Dosage: 5 MG, UNK
  10. AMLODIPINE [Concomitant]
     Dosage: 10 MG, UNK
  11. OMEPRAZOLE [Concomitant]
     Dosage: 20 MG, UNK
  12. SIMVASTATIN [Concomitant]
     Dosage: 10 MG, UNK
  13. INSULIN GLARGINE [Concomitant]
     Dosage: 28 IU, UNK

REACTIONS (3)
  - Serotonin syndrome [Recovered/Resolved]
  - Nuchal rigidity [Recovered/Resolved]
  - Drug interaction [Recovered/Resolved]
